FAERS Safety Report 23835066 (Version 1)
Quarter: 2024Q2

REPORT INFORMATION
  Report Type: Spontaneous
  Country: ID (occurrence: ID)
  Receive Date: 20240509
  Receipt Date: 20240509
  Transmission Date: 20240715
  Serious: Yes (Death, Hospitalization, Other)
  Sender: FDA-Public Use
  Company Number: ID-ABBVIE-5750449

PATIENT
  Age: 36 Year
  Sex: Male
  Weight: 60 kg

DRUGS (9)
  1. SEVOFLURANE [Suspect]
     Active Substance: SEVOFLURANE
     Indication: Maintenance of anaesthesia
     Dosage: 2 VOL%
     Route: 055
     Dates: start: 2022, end: 2022
  2. FENTANYL [Suspect]
     Active Substance: FENTANYL\FENTANYL CITRATE
     Indication: Induction and maintenance of anaesthesia
     Dosage: 5 MCG/KGBB, MAINTENANCE OF ANESTHESIA
     Route: 065
     Dates: start: 2022, end: 2022
  3. FENTANYL [Suspect]
     Active Substance: FENTANYL\FENTANYL CITRATE
     Indication: Induction and maintenance of anaesthesia
     Dosage: INDUCTION ANESTHESIA
     Route: 042
     Dates: start: 2022, end: 2022
  4. NOREPINEPHRINE [Concomitant]
     Active Substance: NOREPINEPHRINE\NOREPINEPHRINE BITARTRATE
     Indication: Vasopressive therapy
     Dosage: 0.05-0.2 MCG/KG/MINUTE
     Route: 065
     Dates: start: 2022
  5. DOBUTAMINE [Concomitant]
     Active Substance: DOBUTAMINE HYDROCHLORIDE
     Indication: Vasopressive therapy
     Dosage: 5-10 MCG/KG/MINUTE
     Dates: start: 2022
  6. ROCURONIUM [Suspect]
     Active Substance: ROCURONIUM BROMIDE
     Indication: Maintenance of anaesthesia
     Dosage: 5 MCG/KGBB/MINUTE, MAINTENANCE OF ANESTHESIA
     Route: 065
     Dates: start: 2022, end: 2022
  7. ROCURONIUM [Suspect]
     Active Substance: ROCURONIUM BROMIDE
     Indication: Maintenance of anaesthesia
     Route: 065
     Dates: start: 2022
  8. MIDAZOLAM [Suspect]
     Active Substance: MIDAZOLAM
     Indication: Induction of anaesthesia
     Route: 042
     Dates: start: 2022, end: 2022
  9. PROPOFOL [Suspect]
     Active Substance: PROPOFOL
     Indication: Induction of anaesthesia
     Route: 042
     Dates: start: 2022, end: 2022

REACTIONS (3)
  - Death [Fatal]
  - Acute kidney injury [Unknown]
  - Acute hepatic failure [Unknown]

NARRATIVE: CASE EVENT DATE: 20220101
